FAERS Safety Report 14999064 (Version 2)
Quarter: 2018Q2

REPORT INFORMATION
  Report Type: Report from Study
  Country: US (occurrence: US)
  Receive Date: 20180612
  Receipt Date: 20180615
  Transmission Date: 20180711
  Serious: No
  Sender: FDA-Public Use
  Company Number: PHEH2018US022919

PATIENT
  Age: 37 Year
  Sex: Female

DRUGS (1)
  1. COSENTYX [Suspect]
     Active Substance: SECUKINUMAB
     Indication: PRODUCT USED FOR UNKNOWN INDICATION
     Dosage: 300 MG, UNK
     Route: 042
     Dates: start: 20180523

REACTIONS (5)
  - Abdominal pain upper [Unknown]
  - Swollen tongue [Unknown]
  - Eye pruritus [Unknown]
  - Incorrect route of drug administration [Unknown]
  - Lip swelling [Unknown]

NARRATIVE: CASE EVENT DATE: 20180523
